FAERS Safety Report 16047730 (Version 1)
Quarter: 2019Q1

REPORT INFORMATION
  Report Type: Report from Study
  Country: CA (occurrence: CA)
  Receive Date: 20190307
  Receipt Date: 20190307
  Transmission Date: 20190418
  Serious: Yes (Other)
  Sender: FDA-Public Use
  Company Number: PHHY2018CA132320

PATIENT
  Sex: Female

DRUGS (20)
  1. PREDNISONE. [Suspect]
     Active Substance: PREDNISONE
     Dosage: 50 MG, PRN
     Route: 048
     Dates: start: 20180925
  2. ATARAX [Concomitant]
     Active Substance: HYDROXYZINE HYDROCHLORIDE
     Indication: INSOMNIA
  3. XOLAIR [Suspect]
     Active Substance: OMALIZUMAB
     Indication: CHRONIC SPONTANEOUS URTICARIA
     Dosage: 300 MG, EVERY 4 WEEKS
     Route: 058
     Dates: start: 20150710, end: 20160112
  4. XOLAIR [Suspect]
     Active Substance: OMALIZUMAB
     Dosage: 300 MG, EVERY 4 WEEKS
     Route: 058
     Dates: start: 20160112
  5. XOLAIR [Suspect]
     Active Substance: OMALIZUMAB
     Dosage: 300 MG, EVERY 4 WEEKS
     Route: 058
     Dates: start: 20190130
  6. XOLAIR [Suspect]
     Active Substance: OMALIZUMAB
     Dosage: UNK
     Route: 058
  7. RUPATADINE [Suspect]
     Active Substance: RUPATADINE
     Indication: PRODUCT USED FOR UNKNOWN INDICATION
     Dosage: UNK
     Route: 065
  8. KETOTIFEN [Concomitant]
     Active Substance: KETOTIFEN
     Dosage: 2 MG, BID
     Route: 048
     Dates: start: 2018
  9. METHOTREXATE. [Suspect]
     Active Substance: METHOTREXATE
     Indication: URTICARIA
     Dosage: 1 DF, UNK
     Route: 058
     Dates: start: 20180925
  10. FOLIC ACID. [Suspect]
     Active Substance: FOLIC ACID
     Indication: URTICARIA
     Dosage: 1 DF, OTHER
     Route: 048
     Dates: start: 20180926
  11. HIZENTRA [Concomitant]
     Active Substance: HUMAN IMMUNOGLOBULIN G
     Indication: IMMUNODEFICIENCY
     Dosage: 1 DF, UNK
     Route: 058
     Dates: start: 2014
  12. MONTELUKAST SODIUM. [Suspect]
     Active Substance: MONTELUKAST SODIUM
     Indication: URTICARIA
     Dosage: 1 DF, QD
     Route: 048
     Dates: start: 20181001
  13. PREDNISONE. [Suspect]
     Active Substance: PREDNISONE
     Indication: URTICARIA
     Dosage: 30 MG, UNK
     Route: 048
  14. ATARAX [Concomitant]
     Active Substance: HYDROXYZINE HYDROCHLORIDE
     Indication: URTICARIA
     Dosage: 1 DF, QD (BEDTIME)
     Route: 048
     Dates: start: 20180925
  15. SYNTHROID [Concomitant]
     Active Substance: LEVOTHYROXINE SODIUM
     Indication: THYROID DISORDER
     Dosage: 1 DF, QD
     Route: 048
     Dates: start: 2001
  16. CANNABIDIOL [Concomitant]
     Active Substance: CANNABIDIOL
     Indication: URTICARIA
     Dosage: 1 DF, QD
     Route: 060
     Dates: start: 20180925
  17. CYTOMEL [Concomitant]
     Active Substance: LIOTHYRONINE SODIUM
     Indication: THYROID DISORDER
     Dosage: 1 DF, QD
     Route: 048
     Dates: start: 2008
  18. KETOTIFEN [Concomitant]
     Active Substance: KETOTIFEN
     Indication: URTICARIA
     Dosage: 1 DF (4 MG), BID
     Route: 048
     Dates: start: 20180925
  19. BILASTINE [Concomitant]
     Active Substance: BILASTINE
     Indication: URTICARIA
     Dosage: 40 MG, UNK
     Route: 048
     Dates: start: 201809
  20. BILASTINE [Concomitant]
     Active Substance: BILASTINE
     Dosage: 80 MG, BID
     Route: 048
     Dates: start: 20180919

REACTIONS (12)
  - Insomnia [Unknown]
  - Headache [Unknown]
  - Sedation [Unknown]
  - Irritability [Unknown]
  - Viral infection [Unknown]
  - Chest discomfort [Unknown]
  - Urticaria [Not Recovered/Not Resolved]
  - Fatigue [Recovered/Resolved]
  - Blood pressure increased [Unknown]
  - Angioedema [Unknown]
  - Urticaria [Recovered/Resolved]
  - Drug hypersensitivity [Unknown]

NARRATIVE: CASE EVENT DATE: 2018
